FAERS Safety Report 23044680 (Version 2)
Quarter: 2024Q2

REPORT INFORMATION
  Report Type: Other
  Country: US (occurrence: None)
  Receive Date: 20231009
  Receipt Date: 20240411
  Transmission Date: 20240716
  Serious: Yes (Other)
  Sender: FDA-Public Use
  Company Number: US-ROCHE-2686815

PATIENT

DRUGS (16)
  1. BEVACIZUMAB [Suspect]
     Active Substance: BEVACIZUMAB
     Indication: Genital neoplasm malignant female
     Route: 042
  2. PACLITAXEL [Suspect]
     Active Substance: PACLITAXEL
     Indication: Genital neoplasm malignant female
     Route: 042
  3. TRASTUZUMAB [Suspect]
     Active Substance: TRASTUZUMAB
     Indication: Genital neoplasm malignant female
     Route: 065
  4. CARBOPLATIN [Suspect]
     Active Substance: CARBOPLATIN
     Indication: Genital neoplasm malignant female
     Route: 065
  5. GEMCITABINE [Suspect]
     Active Substance: GEMCITABINE
     Indication: Genital neoplasm malignant female
     Route: 065
  6. DOXORUBICIN HYDROCHLORIDE [Suspect]
     Active Substance: DOXORUBICIN HYDROCHLORIDE
     Indication: Genital neoplasm malignant female
     Route: 065
  7. CISPLATIN [Suspect]
     Active Substance: CISPLATIN
     Indication: Genital neoplasm malignant female
     Route: 065
  8. IFOSFAMIDE [Suspect]
     Active Substance: IFOSFAMIDE
     Indication: Genital neoplasm malignant female
     Route: 065
  9. CAPECITABINE [Suspect]
     Active Substance: CAPECITABINE
     Indication: Genital neoplasm malignant female
     Route: 065
  10. PEMBROLIZUMAB [Suspect]
     Active Substance: PEMBROLIZUMAB
     Indication: Genital neoplasm malignant female
     Route: 065
  11. LENVATINIB [Suspect]
     Active Substance: LENVATINIB
     Indication: Genital neoplasm malignant female
     Route: 065
  12. AMCASERTIB [Suspect]
     Active Substance: AMCASERTIB
     Indication: Genital neoplasm malignant female
     Route: 065
  13. OLAPARIB [Suspect]
     Active Substance: OLAPARIB
     Indication: Genital neoplasm malignant female
     Route: 065
  14. NIRAPARIB [Suspect]
     Active Substance: NIRAPARIB
     Indication: Genital neoplasm malignant female
     Route: 065
  15. DOXORUBICIN [Suspect]
     Active Substance: DOXORUBICIN
     Indication: Genital neoplasm malignant female
     Route: 065
  16. LETROZOLE [Suspect]
     Active Substance: LETROZOLE
     Indication: Genital neoplasm malignant female
     Route: 065

REACTIONS (33)
  - Neutropenia [Unknown]
  - Leukopenia [Unknown]
  - Large intestine perforation [Unknown]
  - Embolism [Unknown]
  - Lymphopenia [Unknown]
  - Anaemia [Unknown]
  - Hyponatraemia [Unknown]
  - Fatigue [Unknown]
  - Pain [Unknown]
  - Hypersensitivity [Unknown]
  - Alopecia [Unknown]
  - Decreased appetite [Unknown]
  - Arthralgia [Unknown]
  - Blood alkaline phosphatase increased [Unknown]
  - Dehydration [Unknown]
  - Diarrhoea [Unknown]
  - Epistaxis [Unknown]
  - Gastrointestinal disorder [Unknown]
  - Administration site reaction [Unknown]
  - Hypertension [Unknown]
  - Myalgia [Unknown]
  - Nausea [Unknown]
  - Neck pain [Unknown]
  - Pain in extremity [Unknown]
  - Peripheral motor neuropathy [Unknown]
  - Pruritus [Unknown]
  - Vomiting [Unknown]
  - Abdominal pain [Unknown]
  - Blood alkaline phosphatase increased [Unknown]
  - Ascites [Unknown]
  - Aspartate aminotransferase increased [Unknown]
  - Aspiration [Unknown]
  - Vision blurred [Unknown]
